FAERS Safety Report 4784990-3 (Version None)
Quarter: 2005Q3

REPORT INFORMATION
  Report Type: 
  Country: None (occurrence: None)
  Receive Date: 20050928
  Receipt Date: 20050919
  Transmission Date: 20060218
  Serious: Yes (Other)
  Sender: FDA-Public Use
  Company Number: S05-USA-04330-01

PATIENT
  Age: 53 Year
  Sex: Male

DRUGS (3)
  1. LEXAPRO [Suspect]
     Indication: ANXIETY
  2. LEXAPRO [Suspect]
     Indication: DEPRESSION
  3. ALCOHOL (ALCOHOL [Suspect]

REACTIONS (2)
  - BLOOD ALCOHOL INCREASED [None]
  - DRUG INTERACTION [None]
